FAERS Safety Report 12904050 (Version 1)
Quarter: 2016Q4

REPORT INFORMATION
  Report Type: Spontaneous
  Country: RU (occurrence: RU)
  Receive Date: 20161102
  Receipt Date: 20161102
  Transmission Date: 20170207
  Serious: Yes (Other)
  Sender: FDA-Public Use
  Company Number: RU-BAXTER-2016BAX054730

PATIENT
  Age: 19 Year
  Sex: Female

DRUGS (28)
  1. ENDOKSAN POROSHOK DLJA PRIGOTOVLENIJA RASTVORA DLJA VNUTRIVENNOGO VVED [Suspect]
     Active Substance: CYCLOPHOSPHAMIDE
     Indication: BONE MARROW CONDITIONING REGIMEN
     Dosage: 3.6 G/M2; REGIMEN 1
     Route: 065
  2. FLUOROURACIL. [Concomitant]
     Active Substance: FLUOROURACIL
     Dosage: PART OF FLAG
     Route: 065
  3. ARABINOSYLCYTOSINE [Suspect]
     Active Substance: CYTARABINE
     Dosage: CONSOLIDATION: HAE; HIGH DOSE (HD)-ARAC
     Route: 065
     Dates: start: 20150506
  4. LOMUSTIN [Suspect]
     Active Substance: LOMUSTINE
     Indication: ACUTE MYELOID LEUKAEMIA
  5. ARABINOSYLCYTOSINE [Suspect]
     Active Substance: CYTARABINE
     Dosage: 8 G/M2
     Route: 065
  6. BUSULFAN. [Suspect]
     Active Substance: BUSULFAN
     Indication: BONE MARROW CONDITIONING REGIMEN
     Dosage: REGIMEN 1
     Route: 065
  7. ARABINOSYLCYTOSINE [Suspect]
     Active Substance: CYTARABINE
     Dosage: HAM INDUCTION REGIMEN
     Route: 037
     Dates: start: 20150214
  8. ARABINOSYLCYTOSINE [Suspect]
     Active Substance: CYTARABINE
     Dosage: CONSOLIDATION: FLAG; HIGH DOSE (HD)-ARAC
     Route: 065
     Dates: start: 20150506
  9. ANTITHYMOCYTE IMMUNOGLOBULIN [Suspect]
     Active Substance: THYMOCYTE IMMUNE GLOBULIN NOS
     Indication: PROPHYLAXIS AGAINST GRAFT VERSUS HOST DISEASE
     Dosage: AS PART OF ATG/TX/MMF CHEME
     Route: 065
  10. TACROLIMUS. [Suspect]
     Active Substance: TACROLIMUS
     Indication: PROPHYLAXIS AGAINST GRAFT VERSUS HOST DISEASE
     Dosage: REGIMEN 1; AS PART OF ATG/TX/MMF CHEME
     Route: 065
  11. IDARUBICINE [Concomitant]
     Active Substance: IDARUBICIN
     Indication: ACUTE MYELOID LEUKAEMIA
     Dosage: AIE AS A PART OF INDUCTION REGIMEN
     Route: 065
     Dates: start: 20150214
  12. G-CSF [Concomitant]
     Active Substance: GRANULOCYTE COLONY-STIMULATING FACTOR NOS
     Indication: ACUTE MYELOID LEUKAEMIA
     Dosage: CONSOLIDATION: FLAG
     Route: 065
     Dates: start: 20150506
  13. ARABINOSYLCYTOSINE [Suspect]
     Active Substance: CYTARABINE
     Indication: ACUTE MYELOID LEUKAEMIA
     Dosage: AIE INDUCTION REGIMEN
     Route: 065
     Dates: start: 20150214
  14. ARABINOSYLCYTOSINE [Suspect]
     Active Substance: CYTARABINE
     Dosage: HAM INDUCTION REGIMEN; HIGH DOSE (HD)-ARAC
     Route: 065
     Dates: start: 20150214
  15. ARABINOSYLCYTOSINE [Suspect]
     Active Substance: CYTARABINE
     Dosage: CONSOLIDATION: FLAG
     Route: 037
     Dates: start: 20150506
  16. LOMUSTIN [Suspect]
     Active Substance: LOMUSTINE
     Indication: BONE MARROW CONDITIONING REGIMEN
     Dosage: REGIMEN 1
     Route: 065
  17. MYCOPHENOLATE MOFETIL. [Suspect]
     Active Substance: MYCOPHENOLATE MOFETIL
     Indication: PROPHYLAXIS AGAINST GRAFT VERSUS HOST DISEASE
     Dosage: REGIMEN 1; AS PART OF ATG/TX/MMF CHEME
     Route: 065
  18. ETOPOSIDE (VP-16) [Concomitant]
     Active Substance: ETOPOSIDE
     Indication: ACUTE MYELOID LEUKAEMIA
     Dosage: AIE AS A PART OF INDUCTION REGIMEN
     Route: 065
     Dates: start: 20150214
  19. FLUOROURACIL. [Concomitant]
     Active Substance: FLUOROURACIL
     Indication: ACUTE MYELOID LEUKAEMIA
     Dosage: CONSOLIDATION: FLAG
     Route: 065
     Dates: start: 20150506
  20. ARABINOSYLCYTOSINE [Suspect]
     Active Substance: CYTARABINE
     Indication: BONE MARROW CONDITIONING REGIMEN
     Dosage: AIE INDUCTION REGIMEN
     Route: 037
     Dates: start: 20150214
  21. ARABINOSYLCYTOSINE [Suspect]
     Active Substance: CYTARABINE
     Dosage: CONSOLIDATION: HAE
     Route: 037
     Dates: start: 20150506
  22. ETOPOSIDE (VP-16) [Concomitant]
     Active Substance: ETOPOSIDE
     Dosage: CONSOLIDATION: HAE
     Route: 065
     Dates: start: 20150506
  23. G-CSF [Concomitant]
     Active Substance: GRANULOCYTE COLONY-STIMULATING FACTOR NOS
     Dosage: PART OF FLAG
     Route: 065
  24. DECITABINE. [Concomitant]
     Active Substance: DECITABINE
     Indication: ACUTE MYELOID LEUKAEMIA
     Route: 065
  25. BUSULFAN. [Suspect]
     Active Substance: BUSULFAN
     Indication: ACUTE MYELOID LEUKAEMIA
  26. ENDOKSAN POROSHOK DLJA PRIGOTOVLENIJA RASTVORA DLJA VNUTRIVENNOGO VVED [Suspect]
     Active Substance: CYCLOPHOSPHAMIDE
     Indication: ACUTE MYELOID LEUKAEMIA
  27. ARABINOSYLCYTOSINE [Suspect]
     Active Substance: CYTARABINE
     Dosage: PART OF FLAG; HIGH DOSE (HD)-ARAC
     Route: 065
  28. MITOXANTRONE [Concomitant]
     Active Substance: MITOXANTRONE HYDROCHLORIDE
     Indication: ACUTE MYELOID LEUKAEMIA
     Dosage: HAM AS A PART OF INDUCTION REGIMEN
     Route: 065
     Dates: start: 20150214

REACTIONS (5)
  - Acute graft versus host disease in skin [Recovered/Resolved]
  - Graft versus host disease in gastrointestinal tract [Recovered/Resolved]
  - Mucosal inflammation [Unknown]
  - Febrile neutropenia [Unknown]
  - Acute myeloid leukaemia recurrent [Unknown]

NARRATIVE: CASE EVENT DATE: 20160319
